FAERS Safety Report 26075546 (Version 2)
Quarter: 2025Q4

REPORT INFORMATION
  Report Type: Report from Study
  Country: US (occurrence: US)
  Receive Date: 20251121
  Receipt Date: 20251126
  Transmission Date: 20260118
  Serious: Yes (Other)
  Sender: ESTEVE
  Company Number: US-Esteve Pharmaceuticals SA-2189061

PATIENT
  Sex: Female

DRUGS (13)
  1. LYSODREN [Suspect]
     Active Substance: MITOTANE
     Indication: Adrenal gland cancer
  2. LYSODREN [Suspect]
     Active Substance: MITOTANE
     Dates: start: 20240502
  3. LISINOPRIL [Concomitant]
     Active Substance: LISINOPRIL
  4. SPIRONOLACTONE [Concomitant]
     Active Substance: SPIRONOLACTONE
  5. POTASSIUM CHLORIDE [Concomitant]
     Active Substance: POTASSIUM CHLORIDE
  6. NYSTATIN [Concomitant]
     Active Substance: NYSTATIN
  7. LEVOTHYROXINE [Concomitant]
     Active Substance: LEVOTHYROXINE
  8. HYDROCORTISONE [Concomitant]
     Active Substance: HYDROCORTISONE
  9. FAMOTIDINE [Concomitant]
     Active Substance: FAMOTIDINE
  10. BACITRACIN OIN [Concomitant]
  11. LYSODREN [Suspect]
     Active Substance: MITOTANE
  12. LYSODREN [Suspect]
     Active Substance: MITOTANE
  13. LYSODREN [Suspect]
     Active Substance: MITOTANE

REACTIONS (5)
  - Adrenal insufficiency [Unknown]
  - Fall [Not Recovered/Not Resolved]
  - Euphoric mood [Not Recovered/Not Resolved]
  - Dizziness [Not Recovered/Not Resolved]
  - Neutropenia [Unknown]
